FAERS Safety Report 16342895 (Version 6)
Quarter: 2025Q1

REPORT INFORMATION
  Report Type: Spontaneous
  Country: US (occurrence: US)
  Receive Date: 20190522
  Receipt Date: 20250319
  Transmission Date: 20250409
  Serious: Yes (Life-Threatening, Hospitalization, Disabling, Other)
  Sender: PFIZER
  Company Number: US-PFIZER INC-2019213807

PATIENT
  Age: 39 Year
  Sex: Female
  Weight: 66 kg

DRUGS (30)
  1. DEPO-PROVERA [Suspect]
     Active Substance: MEDROXYPROGESTERONE ACETATE
     Indication: Contraception
     Dosage: 150 MG EVERY 3 MONTHS
     Dates: start: 19931217
  2. DEPO-PROVERA [Suspect]
     Active Substance: MEDROXYPROGESTERONE ACETATE
     Indication: Abnormal uterine bleeding
     Route: 030
     Dates: start: 20140619
  3. DEPO-PROVERA [Suspect]
     Active Substance: MEDROXYPROGESTERONE ACETATE
     Dosage: 150 MG EVERY 3 MONTHS
     Dates: end: 20140910
  4. AMLODIPINE [Concomitant]
     Active Substance: AMLODIPINE BESYLATE
     Indication: Hypertension
     Dosage: 10 MG, 1X/DAY
  5. JULUCA [Concomitant]
     Active Substance: DOLUTEGRAVIR SODIUM\RILPIVIRINE HYDROCHLORIDE
     Indication: HIV test positive
     Dosage: JULUCA 50 MG-25 MG ORAL 1 TAB, PO, DAILY TABLET
     Route: 048
     Dates: start: 20190304
  6. NORVASC [Concomitant]
     Active Substance: AMLODIPINE BESYLATE
     Dosage: 10 MG, 1X/DAY
     Route: 048
     Dates: start: 20100909
  7. CEFIXIME [Concomitant]
     Active Substance: CEFIXIME
     Indication: Muscle spasms
     Route: 048
     Dates: start: 20200210
  8. INFLUENZA VIRUS VACCINE [Concomitant]
     Active Substance: INFLUENZA VIRUS VACCINE
     Indication: Immunisation
     Route: 030
     Dates: start: 20160219, end: 20160219
  9. PREMARIN [Concomitant]
     Active Substance: ESTROGENS, CONJUGATED
     Dosage: 0.5 GM VAGINAL HS ONCE WEEKLY
     Route: 067
     Dates: start: 20190108
  10. ESTRADIOL [Concomitant]
     Active Substance: ESTRADIOL
     Dates: start: 20190108
  11. FLULAVAL [Concomitant]
     Indication: Immunisation
     Route: 030
     Dates: start: 20181011, end: 20181011
  12. CYMBALTA [Concomitant]
     Active Substance: DULOXETINE HYDROCHLORIDE
     Dosage: 30 MG, 2X/DAY
     Route: 048
     Dates: start: 20200715, end: 20201112
  13. CYMBALTA [Concomitant]
     Active Substance: DULOXETINE HYDROCHLORIDE
     Dosage: 60 MG 1 CAPSULE ORALLY DAILY
     Route: 048
  14. PREGABALIN [Concomitant]
     Active Substance: PREGABALIN
     Dosage: 100 MG, 2X/DAY
     Dates: start: 20200715
  15. DICLOFENAC [Concomitant]
     Active Substance: DICLOFENAC
     Indication: Pain
     Dates: start: 20200507
  16. DICLOFENAC [Concomitant]
     Active Substance: DICLOFENAC
     Dosage: 1 % AS DIRECTED TRANSDERMAL TWICE A DAY
     Route: 062
  17. INFLUENZA VIRUS VACCINE [Concomitant]
     Active Substance: INFLUENZA VIRUS VACCINE
     Indication: Immunisation
     Dates: start: 20181011
  18. INFLUENZA VIRUS VACCINE [Concomitant]
     Active Substance: INFLUENZA VIRUS VACCINE
     Dates: start: 20160219
  19. CETIRIZINE HCL [Concomitant]
     Active Substance: CETIRIZINE HYDROCHLORIDE
     Dosage: 10 MG 1 TABLET ORALLY ONCE A DAY
     Route: 048
  20. TRIAMCINOLONE ACETONIDE [Concomitant]
     Active Substance: TRIAMCINOLONE ACETONIDE
     Dosage: 0.1 % 1 APPLICATION TO AFFECTED AREA EXTERNALLY TWICE A DAY
  21. HYDROXYZINE HYDROCHLORIDE [Concomitant]
     Active Substance: HYDROXYZINE HYDROCHLORIDE
     Indication: Anxiety
     Route: 048
  22. TOPAMAX [Concomitant]
     Active Substance: TOPIRAMATE
     Dosage: 25 MG 1 TABLET FOR A WEEK AT BEDTIME
  23. TOPAMAX [Concomitant]
     Active Substance: TOPIRAMATE
     Dosage: THEN 2 AFTER THAT ORALLY AT BEDTIME
     Route: 048
  24. TRAZODONE HCL [Concomitant]
     Active Substance: TRAZODONE HYDROCHLORIDE
     Dosage: 100 MG 1 TABLET AT BEDTIME ORALLY ONCE A DAY
     Route: 048
  25. VITAMIN B12 [Concomitant]
     Active Substance: CYANOCOBALAMIN
  26. IBUPROFEN [Concomitant]
     Active Substance: IBUPROFEN
     Indication: Pain
     Route: 048
  27. SEROQUEL [Concomitant]
     Active Substance: QUETIAPINE FUMARATE
  28. TYLENOL WITH CODEINE [Concomitant]
     Active Substance: ACETAMINOPHEN\CODEINE PHOSPHATE
     Dosage: ML, PO, Q6H
     Route: 048
  29. TYLENOL [Concomitant]
     Active Substance: ACETAMINOPHEN
  30. NAPROXEN [Concomitant]
     Active Substance: NAPROXEN
     Route: 048

REACTIONS (50)
  - Heavy menstrual bleeding [Not Recovered/Not Resolved]
  - Weight fluctuation [Not Recovered/Not Resolved]
  - Anaemia [Not Recovered/Not Resolved]
  - Osteoporosis [Not Recovered/Not Resolved]
  - Mobility decreased [Not Recovered/Not Resolved]
  - Hormone level abnormal [Not Recovered/Not Resolved]
  - Depression [Not Recovered/Not Resolved]
  - Nervous system disorder [Not Recovered/Not Resolved]
  - Vaginal haemorrhage [Unknown]
  - Vomiting [Unknown]
  - Pyrexia [Unknown]
  - Pain [Unknown]
  - Nausea [Unknown]
  - Myomectomy [Unknown]
  - Emotional distress [Unknown]
  - Loss of personal independence in daily activities [Unknown]
  - Endometrial disorder [Unknown]
  - Abnormal uterine bleeding [Unknown]
  - Fungal infection [Unknown]
  - Haemoglobin decreased [Unknown]
  - Vaginal discharge [Unknown]
  - Menstruation irregular [Unknown]
  - Uterine enlargement [Unknown]
  - Bacterial vaginosis [Unknown]
  - Abdominal pain [Unknown]
  - Lip swelling [Unknown]
  - Oropharyngeal discomfort [Unknown]
  - Eye swelling [Unknown]
  - Burning mouth syndrome [Unknown]
  - Trichomoniasis [Unknown]
  - Infection [Unknown]
  - Chills [Unknown]
  - Lymphadenopathy [Unknown]
  - Affective disorder [Unknown]
  - Fatigue [Unknown]
  - Malaise [Unknown]
  - Hypoaesthesia [Unknown]
  - Paraesthesia [Unknown]
  - Headache [Unknown]
  - Abdominal discomfort [Unknown]
  - Hot flush [Unknown]
  - Hypoacusis [Unknown]
  - Hypersensitivity [Unknown]
  - Joint swelling [Unknown]
  - Amnesia [Unknown]
  - Premature menopause [Unknown]
  - Uterine cyst [Unknown]
  - Insomnia [Unknown]
  - Constipation [Unknown]
  - Pollakiuria [Unknown]

NARRATIVE: CASE EVENT DATE: 20140903
